FAERS Safety Report 6269729-7 (Version None)
Quarter: 2009Q3

REPORT INFORMATION
  Report Type: 
  Country: None (occurrence: None)
  Receive Date: 20090716
  Receipt Date: 20090707
  Transmission Date: 20100115
  Serious: Yes (Other)
  Sender: FDA-Public Use
  Company Number: DE-WYE-H10149309

PATIENT

DRUGS (1)
  1. CORDAREX [Suspect]
     Dosage: 200 MG TABLET, DOSE UNSPECIFIED
     Route: 048
     Dates: start: 20080101

REACTIONS (1)
  - ASCITES [None]
